FAERS Safety Report 11966383 (Version 3)
Quarter: 2016Q2

REPORT INFORMATION
  Report Type: Spontaneous
  Country: US (occurrence: US)
  Receive Date: 20160127
  Receipt Date: 20160421
  Transmission Date: 20160815
  Serious: Yes (Death, Hospitalization, Other)
  Sender: FDA-Public Use
  Company Number: US-PFIZER INC-2016042860

PATIENT
  Age: 87 Year
  Sex: Female
  Weight: 61.23 kg

DRUGS (3)
  1. REVATIO [Suspect]
     Active Substance: SILDENAFIL CITRATE
     Dosage: 20 MG, ONE TABLET 1X/DAY AT BEDTIME
     Route: 048
     Dates: start: 2013, end: 201512
  2. CARVEDILOL. [Suspect]
     Active Substance: CARVEDILOL
     Indication: DILATATION VENTRICULAR
     Dosage: 12.5 MG ONE HALF TABLET, 2X/DAY
     Route: 048
     Dates: start: 201206, end: 201601
  3. REVATIO [Suspect]
     Active Substance: SILDENAFIL CITRATE
     Indication: PULMONARY HYPERTENSION
     Dosage: 10 MG, 1X/DAY
     Dates: start: 201006

REACTIONS (5)
  - Hepatic failure [Fatal]
  - Fluid retention [Fatal]
  - Multiple organ dysfunction syndrome [Fatal]
  - Renal failure [Fatal]
  - Hypotension [Unknown]

NARRATIVE: CASE EVENT DATE: 2015
